FAERS Safety Report 12927577 (Version 1)
Quarter: 2016Q4

REPORT INFORMATION
  Report Type: Spontaneous
  Country: US (occurrence: US)
  Receive Date: 20161109
  Receipt Date: 20161109
  Transmission Date: 20170207
  Serious: Yes (Disabling)
  Sender: FDA-Public Use
  Company Number: None

PATIENT
  Age: 58 Year
  Sex: Female
  Weight: 56.7 kg

DRUGS (2)
  1. TINIDAZOLE. [Suspect]
     Active Substance: TINIDAZOLE
     Indication: VULVOVAGINAL MYCOTIC INFECTION
     Dosage: ?          QUANTITY:4 TABLET(S);?
     Route: 048
  2. TINIDAZOLE. [Suspect]
     Active Substance: TINIDAZOLE
     Indication: BACTERIAL INFECTION
     Dosage: ?          QUANTITY:4 TABLET(S);?
     Route: 048

REACTIONS (7)
  - Dysgeusia [None]
  - Dizziness [None]
  - Malaise [None]
  - Asthenia [None]
  - Dry mouth [None]
  - Nausea [None]
  - Headache [None]

NARRATIVE: CASE EVENT DATE: 20161108
